FAERS Safety Report 10469272 (Version 1)
Quarter: 2014Q3

REPORT INFORMATION
  Report Type: Spontaneous
  Country: PL (occurrence: None)
  Receive Date: 20140919
  Receipt Date: 20140919
  Transmission Date: 20150326
  Serious: Yes (Hospitalization)
  Sender: FDA-Public Use
  Company Number: PL-ZYDUS-005011

PATIENT
  Age: 53 Year
  Sex: Male

DRUGS (6)
  1. GOSERELIN [Concomitant]
     Active Substance: GOSERELIN
  2. BICALUTAMIDE. [Suspect]
     Active Substance: BICALUTAMIDE
     Dosage: 3.00 TIMES PER-1.0 DAYS
  3. TRIPTORELIN [Concomitant]
     Active Substance: TRIPTORELIN
  4. FLUTAMIDE. [Suspect]
     Active Substance: FLUTAMIDE
     Dosage: 250MG TID.
     Dates: start: 201011, end: 201111
  5. PAMIDRONATE DISODIUM. [Concomitant]
     Active Substance: PAMIDRONATE DISODIUM
  6. SIMVASTATIN (SIMVASTATIN) [Suspect]
     Active Substance: SIMVASTATIN
     Indication: HYPERCHOLESTEROLAEMIA

REACTIONS (1)
  - Pustular psoriasis [None]
